FAERS Safety Report 7367401-3 (Version None)
Quarter: 2011Q1

REPORT INFORMATION
  Report Type: 
  Country: None (occurrence: None)
  Receive Date: 20110322
  Receipt Date: 20110307
  Transmission Date: 20110831
  Serious: Yes (Hospitalization)
  Sender: FDA-Public Use
  Company Number: GB-GENENTECH-315502

PATIENT

DRUGS (9)
  1. DACARBAZINE [Suspect]
     Indication: LYMPHOMA
     Dosage: 375 MG/M2, UNK
     Route: 065
  2. BLEOMYCIN [Suspect]
     Indication: LYMPHOMA
     Dosage: 10000 IU, UNK
     Route: 065
  3. VINCRISTINE [Suspect]
     Indication: LYMPHOMA
     Dosage: 2 MG, UNK
     Route: 065
  4. DOXORUBICIN [Suspect]
     Indication: LYMPHOMA
     Dosage: UNK
     Route: 065
  5. PREDNISONE [Suspect]
     Indication: LYMPHOMA
     Dosage: 40 MG/M2, UNK
     Route: 065
  6. GEMCITABINE [Suspect]
     Indication: LYMPHOMA
     Dosage: UNK
     Route: 065
  7. VINBLASTINE [Suspect]
     Indication: LYMPHOMA
     Dosage: 6 MG/M2, UNK
     Route: 065
  8. RITUXIMAB [Suspect]
     Indication: LYMPHOMA
     Dosage: 375 MG/M2, UNK
     Route: 065
  9. CYCLOPHOSPHAMIDE [Suspect]
     Indication: LYMPHOMA
     Dosage: 750 MG/M2, UNK
     Route: 065

REACTIONS (4)
  - INFECTION [None]
  - HEPATOTOXICITY [None]
  - NEUTROPENIC SEPSIS [None]
  - DIARRHOEA [None]
